FAERS Safety Report 22289557 (Version 1)
Quarter: 2023Q2

REPORT INFORMATION
  Report Type: Spontaneous
  Country: US (occurrence: None)
  Receive Date: 20230504
  Receipt Date: 20230504
  Transmission Date: 20230722
  Serious: Yes (Other)
  Sender: FDA-Public Use
  Company Number: None

PATIENT
  Age: 44 Year
  Sex: Female
  Weight: 90 kg

DRUGS (7)
  1. EMGALITY [Suspect]
     Active Substance: GALCANEZUMAB-GNLM
     Indication: Migraine
     Dosage: OTHER QUANTITY : 2 INJECTION(S);?OTHER FREQUENCY : ONCE MONTHLY;?
     Route: 058
     Dates: start: 20230128
  2. GABAPENTIN [Concomitant]
  3. Cimiza [Concomitant]
  4. BOTOX [Concomitant]
     Active Substance: ONABOTULINUMTOXINA
  5. Women 40+ Daily Vitamin [Concomitant]
  6. KRILL OIL [Concomitant]
  7. Ceterazine Hydrochloride [Concomitant]

REACTIONS (8)
  - Rash [None]
  - Urticaria [None]
  - Burning sensation [None]
  - Crying [None]
  - Pain [None]
  - Pruritus [None]
  - Hypoaesthesia [None]
  - Injection related reaction [None]

NARRATIVE: CASE EVENT DATE: 20230129
